FAERS Safety Report 7216979-9 (Version None)
Quarter: 2011Q1

REPORT INFORMATION
  Report Type: 
  Country: None (occurrence: None)
  Receive Date: 20110105
  Receipt Date: 20110105
  Transmission Date: 20110831
  Serious: No
  Sender: FDA-Public Use
  Company Number: None

PATIENT
  Sex: Female
  Weight: 85.2762 kg

DRUGS (1)
  1. TOPAMAX [Suspect]
     Indication: EPILEPSY
     Dosage: 100 MG BID PO
     Route: 048
     Dates: start: 20101229, end: 20101231

REACTIONS (3)
  - PRODUCT ODOUR ABNORMAL [None]
  - PRODUCT LOT NUMBER ISSUE [None]
  - DYSPEPSIA [None]
